FAERS Safety Report 23993434 (Version 1)
Quarter: 2024Q2

REPORT INFORMATION
  Report Type: Spontaneous
  Country: US (occurrence: US)
  Receive Date: 20240620
  Receipt Date: 20240620
  Transmission Date: 20240716
  Serious: Yes (Death)
  Sender: FDA-Public Use
  Company Number: US-AMGEN-USASP2024119737

PATIENT
  Age: 31 Year
  Sex: Male

DRUGS (13)
  1. FILGRASTIM [Suspect]
     Active Substance: FILGRASTIM
     Indication: Mastocytic leukaemia
     Dosage: UNK
     Route: 065
  2. EPINEPHRINE [Concomitant]
     Active Substance: EPINEPHRINE
     Indication: Hypotension
     Dosage: UNK
     Route: 042
  3. DIPHENHYDRAMINE [Concomitant]
     Active Substance: DIPHENHYDRAMINE
     Indication: Mastocytic leukaemia
     Dosage: UNK
     Route: 065
  4. CETIRIZINE [Concomitant]
     Active Substance: CETIRIZINE HYDROCHLORIDE
     Indication: Mastocytic leukaemia
     Dosage: UNK
     Route: 065
  5. FAMOTIDINE [Concomitant]
     Active Substance: FAMOTIDINE
     Indication: Mastocytic leukaemia
     Dosage: UNK
     Route: 065
  6. DEXAMETHASONE [Concomitant]
     Active Substance: DEXAMETHASONE
     Indication: Mastocytic leukaemia
     Dosage: UNK
     Route: 065
  7. AVAPRITINIB [Concomitant]
     Active Substance: AVAPRITINIB
     Indication: Mastocytic leukaemia
     Dosage: UNK
     Route: 065
  8. CLADRIBINE [Concomitant]
     Active Substance: CLADRIBINE
     Indication: Mastocytic leukaemia
     Dosage: UNK
     Route: 065
  9. IMATINIB [Concomitant]
     Active Substance: IMATINIB
     Indication: Mastocytic leukaemia
     Dosage: UNK
     Route: 065
  10. MIDOSTAURIN [Concomitant]
     Active Substance: MIDOSTAURIN
     Indication: Mastocytic leukaemia
     Dosage: UNK
     Route: 065
  11. CYTARABINE [Concomitant]
     Active Substance: CYTARABINE
     Indication: Mastocytic leukaemia
     Dosage: UNK
     Route: 065
  12. MITOXANTRONE [Concomitant]
     Active Substance: MITOXANTRONE HYDROCHLORIDE
     Indication: Mastocytic leukaemia
  13. OMALIZUMAB [Concomitant]
     Active Substance: OMALIZUMAB
     Indication: Mastocytic leukaemia
     Dosage: 300 MILLIGRAM, 48 HOURS APART
     Route: 065

REACTIONS (2)
  - Death [Fatal]
  - Multiple-drug resistance [Unknown]
